FAERS Safety Report 13051156 (Version 2)
Quarter: 2017Q1

REPORT INFORMATION
  Report Type: Spontaneous
  Country: HR (occurrence: HR)
  Receive Date: 20161221
  Receipt Date: 20170125
  Transmission Date: 20170428
  Serious: Yes (Other)
  Sender: FDA-Public Use
  Company Number: HR-BAYER-2016-242128

PATIENT
  Sex: Female

DRUGS (2)
  1. EUTHYROX [Concomitant]
     Active Substance: LEVOTHYROXINE SODIUM
     Indication: HYPOTHYROIDISM
     Dosage: UNK
  2. MIRENA [Suspect]
     Active Substance: LEVONORGESTREL
     Indication: CONTRACEPTION
     Dosage: 20 MCG/24HR, CONT
     Route: 015
     Dates: start: 201611

REACTIONS (8)
  - Loss of consciousness [Recovered/Resolved]
  - Nausea [Recovered/Resolved]
  - Asthenia [Recovered/Resolved]
  - Asthenia [Recovered/Resolved]
  - Blood pressure fluctuation [Recovered/Resolved]
  - Malaise [Recovered/Resolved]
  - Nausea [Recovered/Resolved]
  - Blood pressure fluctuation [Recovered/Resolved]

NARRATIVE: CASE EVENT DATE: 201611
